FAERS Safety Report 8071448-1 (Version None)
Quarter: 2012Q1

REPORT INFORMATION
  Report Type: 
  Country: None (occurrence: None)
  Receive Date: 20120125
  Receipt Date: 20120116
  Transmission Date: 20120608
  Serious: Yes (Hospitalization, Other)
  Sender: FDA-Public Use
  Company Number: TW-PURDUE-USA-2012-0080906

PATIENT
  Age: 35 Year
  Sex: Female

DRUGS (3)
  1. ZOLPIDEM TARTRATE [Suspect]
     Dosage: UNSPECIFIED AMOUNT, EVERY 15-30 MINUTES
  2. ZOLPIDEM TARTRATE [Suspect]
     Dosage: 400-500MG DAILY
  3. ZOLPIDEM TARTRATE [Suspect]
     Indication: DRUG ABUSE
     Dosage: 10-20 MG

REACTIONS (3)
  - DRUG WITHDRAWAL SYNDROME [None]
  - GRAND MAL CONVULSION [None]
  - DRUG ABUSE [None]
